FAERS Safety Report 6647232-X (Version None)
Quarter: 2010Q1

REPORT INFORMATION
  Report Type: 
  Country: None (occurrence: None)
  Receive Date: 20100323
  Receipt Date: 20100315
  Transmission Date: 20100710
  Serious: Yes (Other)
  Sender: FDA-Public Use
  Company Number: A0842605A

PATIENT
  Age: 43 Year
  Sex: Male

DRUGS (5)
  1. ADVAIR DISKUS 100/50 [Suspect]
     Indication: ASTHMA
     Dosage: 1PUFF TWICE PER DAY
     Route: 055
     Dates: start: 20030101
  2. ALBUTEROL [Concomitant]
  3. SYNTHROID [Concomitant]
  4. NASONEX [Concomitant]
  5. ZYRTEC [Concomitant]

REACTIONS (3)
  - ASTHMA [None]
  - COUGH [None]
  - PRODUCT QUALITY ISSUE [None]
